FAERS Safety Report 9798297 (Version 1)
Quarter: 2014Q1

REPORT INFORMATION
  Report Type: Spontaneous
  Country: US (occurrence: None)
  Receive Date: 20140103
  Receipt Date: 20140103
  Transmission Date: 20141002
  Serious: Yes (Life-Threatening, Hospitalization, Disabling, Other)
  Sender: FDA-Public Use
  Company Number: None

PATIENT
  Age: 40 Year
  Sex: Male
  Weight: 96.62 kg

DRUGS (1)
  1. TRICOR [Suspect]
     Indication: BLOOD CHOLESTEROL INCREASED
     Route: 048

REACTIONS (13)
  - Weight increased [None]
  - Restlessness [None]
  - Loss of libido [None]
  - Fatigue [None]
  - Anxiety [None]
  - Depression [None]
  - Night sweats [None]
  - Nausea [None]
  - Arthralgia [None]
  - Headache [None]
  - Migraine [None]
  - Thyroid cancer [None]
  - Thyroid cyst [None]
